FAERS Safety Report 9428565 (Version 1)
Quarter: 2013Q3

REPORT INFORMATION
  Report Type: Report from Study
  Country: US (occurrence: US)
  Receive Date: 20130730
  Receipt Date: 20130730
  Transmission Date: 20140515
  Serious: No
  Sender: FDA-Public Use
  Company Number: US-ABBOTT-12P-163-1016813-00

PATIENT
  Age: 78 Year
  Sex: Male
  Weight: 66.28 kg

DRUGS (5)
  1. NIASPAN (COATED) [Suspect]
     Indication: HIGH DENSITY LIPOPROTEIN INCREASED
     Dosage: STARTER PACK TAKING IT IN THE MORNING
     Dates: start: 20121020
  2. NIASPAN (COATED) [Suspect]
     Indication: BLOOD CHOLESTEROL
     Dosage: 500 MG IN THE EVENING AND ALSO ANOTHER ONE 12 HOURS FROM THE MORNING
     Dates: start: 20121103
  3. LIPITOR [Concomitant]
     Indication: PRODUCT USED FOR UNKNOWN INDICATION
     Dosage: EVERY NIGHT
  4. FINASTERIDE [Concomitant]
     Indication: PRODUCT USED FOR UNKNOWN INDICATION
     Dosage: DAILY
  5. MAGNESIUM OXIDE [Concomitant]
     Indication: PRODUCT USED FOR UNKNOWN INDICATION
     Dosage: DAILY

REACTIONS (2)
  - Oral mucosal exfoliation [Not Recovered/Not Resolved]
  - Flushing [Recovered/Resolved]
